FAERS Safety Report 10626434 (Version 1)
Quarter: 2014Q4

REPORT INFORMATION
  Report Type: Spontaneous
  Country: US (occurrence: US)
  Receive Date: 20141204
  Receipt Date: 20141204
  Transmission Date: 20150529
  Serious: No
  Sender: FDA-Public Use
  Company Number: US-TARO-2014P1001395

PATIENT
  Age: 66 Year
  Sex: Female
  Weight: 71.22 kg

DRUGS (7)
  1. LOMOTIL [Concomitant]
     Active Substance: ATROPINE SULFATE\DIPHENOXYLATE HYDROCHLORIDE
  2. SYNTHROID [Concomitant]
     Active Substance: LEVOTHYROXINE SODIUM
  3. ZYRTEC [Concomitant]
     Active Substance: CETIRIZINE HYDROCHLORIDE
  4. ATARAX [Concomitant]
     Active Substance: HYDROXYZINE\HYDROXYZINE HYDROCHLORIDE
  5. TOPICORT [Suspect]
     Active Substance: DESOXIMETASONE
     Indication: RASH PRURITIC
     Route: 061
     Dates: start: 20140212, end: 20140212
  6. TOPICORT [Suspect]
     Active Substance: DESOXIMETASONE
     Indication: RASH PRURITIC
     Route: 061
     Dates: start: 201402
  7. SINGULAIR [Concomitant]
     Active Substance: MONTELUKAST SODIUM

REACTIONS (2)
  - Off label use [Not Recovered/Not Resolved]
  - Application site pain [Recovered/Resolved]

NARRATIVE: CASE EVENT DATE: 20140212
